FAERS Safety Report 17439024 (Version 1)
Quarter: 2020Q1

REPORT INFORMATION
  Report Type: Report from Study
  Country: IE (occurrence: IE)
  Receive Date: 20200220
  Receipt Date: 20200220
  Transmission Date: 20200409
  Serious: Yes (Other)
  Sender: FDA-Public Use
  Company Number: IE-EMD SERONO-9146108

PATIENT
  Sex: Female

DRUGS (6)
  1. SAIZEN [Suspect]
     Active Substance: SOMATROPIN
     Dosage: UNKNOWN DOSE
  2. SAIZEN [Suspect]
     Active Substance: SOMATROPIN
     Route: 058
     Dates: start: 20160218
  3. SAIZEN [Suspect]
     Active Substance: SOMATROPIN
     Dosage: LIQUID CARTRIDGE
     Route: 058
     Dates: start: 20160923, end: 20180709
  4. SAIZEN [Suspect]
     Active Substance: SOMATROPIN
     Indication: PRODUCT USED FOR UNKNOWN INDICATION
     Dosage: LIQUID CARTRIDGE
     Route: 058
     Dates: start: 20130304, end: 20140518
  5. SAIZEN [Suspect]
     Active Substance: SOMATROPIN
     Dosage: LIQUID CARTRIDGE
     Route: 058
     Dates: start: 20160224, end: 20160923
  6. SAIZEN [Suspect]
     Active Substance: SOMATROPIN
     Dosage: LIQUID CARTRIDGE
     Route: 058
     Dates: start: 20140519, end: 20160224

REACTIONS (1)
  - Scoliosis [Not Recovered/Not Resolved]
